FAERS Safety Report 9699085 (Version 1)
Quarter: 2013Q4

REPORT INFORMATION
  Report Type: Spontaneous
  Country: US (occurrence: US)
  Receive Date: 20131120
  Receipt Date: 20131120
  Transmission Date: 20140711
  Serious: Yes (Hospitalization)
  Sender: FDA-Public Use
  Company Number: US-MPIJNJ-2013MPI000989

PATIENT
  Age: 77 Year
  Sex: Female
  Weight: 100.23 kg

DRUGS (1)
  1. VELCADE [Suspect]
     Indication: PLASMA CELL MYELOMA
     Dosage: 2 MG, ON DAYS 1, 4, 8 AND 11
     Route: 058
     Dates: start: 20130618, end: 20130716

REACTIONS (2)
  - Spinal pain [Recovered/Resolved]
  - Spinal compression fracture [Recovered/Resolved]
